FAERS Safety Report 8844741 (Version 2)
Quarter: 2014Q4

REPORT INFORMATION
  Report Type: Report from Study
  Country: US (occurrence: US)
  Receive Date: 20120426
  Receipt Date: 20141022
  Transmission Date: 20150529
  Serious: Yes (Other)
  Sender: FDA-Public Use
  Company Number: PHEH2012US003218

PATIENT
  Age: 53 Year
  Sex: Female

DRUGS (8)
  1. FOLIC ACID. [Concomitant]
     Active Substance: FOLIC ACID
     Indication: PRODUCT USED FOR UNKNOWN INDICATION
     Route: 065
  2. CALCIUM [Concomitant]
     Active Substance: CALCIUM
     Indication: PRODUCT USED FOR UNKNOWN INDICATION
     Route: 065
  3. VITAMIN B6 [Concomitant]
     Active Substance: PYRIDOXINE HYDROCHLORIDE
     Indication: PRODUCT USED FOR UNKNOWN INDICATION
     Route: 065
  4. CITALOPRAM HYDROBROMIDE. [Concomitant]
     Active Substance: CITALOPRAM HYDROBROMIDE
     Indication: PRODUCT USED FOR UNKNOWN INDICATION
     Route: 065
  5. WARFARIN SODIUM. [Concomitant]
     Active Substance: WARFARIN SODIUM
     Indication: PRODUCT USED FOR UNKNOWN INDICATION
     Route: 065
  6. COUMADIN [Concomitant]
     Active Substance: WARFARIN SODIUM
     Indication: PRODUCT USED FOR UNKNOWN INDICATION
     Route: 065
  7. GILENYA [Suspect]
     Active Substance: FINGOLIMOD HYDROCHLORIDE
     Indication: MULTIPLE SCLEROSIS
     Dosage: 0.5 MG, QD
     Route: 048
     Dates: start: 20120125
  8. BENAZEPRIL AND HYDROCHLOROTHIAZIDE [Concomitant]
     Active Substance: BENAZEPRIL HYDROCHLORIDE\HYDROCHLOROTHIAZIDE
     Indication: PRODUCT USED FOR UNKNOWN INDICATION
     Route: 065

REACTIONS (36)
  - Cerebral atrophy [Unknown]
  - Renal vein embolism [Unknown]
  - Balance disorder [Unknown]
  - Pollakiuria [Unknown]
  - Abdominal pain upper [Recovering/Resolving]
  - Memory impairment [Unknown]
  - Depression [Unknown]
  - Disturbance in attention [Unknown]
  - Fall [Unknown]
  - Hypercoagulation [Unknown]
  - Coagulation test abnormal [Unknown]
  - Fatigue [Unknown]
  - Vertigo [Unknown]
  - Asthenia [Unknown]
  - Pain in extremity [Unknown]
  - Arthralgia [Unknown]
  - Renal vein thrombosis [Unknown]
  - Back pain [Unknown]
  - Cognitive disorder [Unknown]
  - Hemiparesis [Unknown]
  - Tendonitis [Unknown]
  - Essential hypertension [Unknown]
  - Nasal discomfort [Recovering/Resolving]
  - Renal infarct [Unknown]
  - Bursitis [Unknown]
  - Nasopharyngitis [Recovering/Resolving]
  - Multiple sclerosis relapse [Unknown]
  - Vision blurred [Unknown]
  - Muscular weakness [Unknown]
  - Gait disturbance [Unknown]
  - Sleep apnoea syndrome [Unknown]
  - Urinary tract infection [Unknown]
  - Headache [Recovering/Resolving]
  - Oropharyngeal pain [Recovering/Resolving]
  - Paraesthesia [Unknown]
  - Sciatica [Unknown]

NARRATIVE: CASE EVENT DATE: 20120128
